FAERS Safety Report 9097173 (Version 2)
Quarter: 2014Q1

REPORT INFORMATION
  Report Type: Report from Study
  Country: CA (occurrence: CA)
  Receive Date: 20130212
  Receipt Date: 20140120
  Transmission Date: 20141002
  Serious: Yes (Life-Threatening, Hospitalization)
  Sender: FDA-Public Use
  Company Number: CA-009507513-1302CAN004190

PATIENT
  Age: 16 Year
  Sex: Male
  Weight: 56.5 kg

DRUGS (9)
  1. CHLORPHENIRAMINE MALEATE [Suspect]
     Dosage: 20 MG, ONCE-10 TAB OF 2 MG
     Route: 048
     Dates: start: 20110911, end: 20110911
  2. PHENYLEPHRINE [Suspect]
     Dosage: 100 MG, ONCE-20 TAB OF 5 MG
     Route: 048
     Dates: start: 20110911, end: 20110911
  3. BENADRYL [Suspect]
     Dosage: 1200 MG, ONCE-48 TAB OF 25 MG
     Route: 048
     Dates: start: 20110911, end: 20110911
  4. TYLENOL [Suspect]
     Dosage: 10000 MG, ONCE-20 TAB OF 500 MG
     Route: 048
     Dates: start: 20110911, end: 20110911
  5. ATORVASTATIN CALCIUM [Suspect]
     Indication: TYPE IIA HYPERLIPIDAEMIA
     Dosage: 10 MG, QD
     Route: 048
     Dates: start: 20090526, end: 20101208
  6. ATORVASTATIN CALCIUM [Suspect]
     Dosage: 20 MG, QD
     Route: 048
     Dates: start: 20101209, end: 20110517
  7. ATORVASTATIN CALCIUM [Suspect]
     Dosage: 40 MG, QD
     Route: 048
     Dates: start: 20110518, end: 20110911
  8. ADVIL [Suspect]
     Dosage: 14400 MG- 72 TAB OF 200 MG
     Route: 048
     Dates: start: 20110911, end: 20110911
  9. ADVIL [Suspect]
     Dosage: 3000 MG, ONCE-30 TAB OF 100 MG
     Route: 048
     Dates: start: 20110911, end: 20110911

REACTIONS (1)
  - Suicide attempt [Recovered/Resolved]
